FAERS Safety Report 15772447 (Version 8)
Quarter: 2019Q2

REPORT INFORMATION
  Report Type: Report from Study
  Country: JP (occurrence: JP)
  Receive Date: 20181228
  Receipt Date: 20190528
  Transmission Date: 20190711
  Serious: Yes (Hospitalization)
  Sender: FDA-Public Use
  Company Number: JP-FERRINGPH-2017FE06919

PATIENT

DRUGS (27)
  1. CLEAR BONE                         /00271001/ [Concomitant]
     Indication: BONE SCAN
     Dosage: UNK
     Dates: start: 20171031, end: 20181226
  2. LEVOFLOXACIN. [Concomitant]
     Active Substance: LEVOFLOXACIN
     Indication: PROPHYLAXIS
     Dosage: UNK
     Dates: start: 20171225, end: 20171229
  3. XYLOCAINE [Concomitant]
     Active Substance: LIDOCAINE HYDROCHLORIDE
     Indication: ANAESTHESIA PROCEDURE
     Dosage: UNK
     Dates: start: 20171225, end: 20180502
  4. SYMPROIC [Concomitant]
     Active Substance: NALDEMEDINE
  5. LOXONIN [Concomitant]
     Active Substance: LOXOPROFEN SODIUM
     Indication: LUMBAR SPINAL STENOSIS
     Dosage: UNK
  6. LOXONIN [Concomitant]
     Active Substance: LOXOPROFEN SODIUM
     Indication: OSTEOARTHRITIS
     Dosage: UNK
     Dates: start: 20180224
  7. ONETRAM [Concomitant]
     Active Substance: TRAMADOL HYDROCHLORIDE
  8. XTANDI [Suspect]
     Active Substance: ENZALUTAMIDE
     Indication: HORMONE-REFRACTORY PROSTATE CANCER
     Dosage: 160 MG, 1 TIME DAILY
     Route: 048
     Dates: start: 20190426
  9. IOPAMIDOL [Concomitant]
     Active Substance: IOPAMIDOL
     Indication: COMPUTERISED TOMOGRAM
     Dosage: UNK
     Dates: start: 20180418, end: 20181226
  10. XTANDI [Suspect]
     Active Substance: ENZALUTAMIDE
     Dosage: 160 MG, 1 TIME DAILY
     Route: 048
     Dates: start: 20170802, end: 20181219
  11. REBAMIPIDE [Concomitant]
     Active Substance: REBAMIPIDE
     Indication: STOMATITIS
     Dosage: UNK
  12. ADONA                              /00056903/ [Concomitant]
     Active Substance: CARBAZOCHROME SODIUM SULFONATE
     Indication: PROPHYLAXIS
     Dosage: UNK
     Dates: start: 20171225, end: 20171228
  13. DEGARELIX [Suspect]
     Active Substance: DEGARELIX
     Indication: HORMONE-REFRACTORY PROSTATE CANCER
     Dosage: 80 MG, EVERY 4 WEEKS
     Route: 058
     Dates: end: 20170801
  14. SENNOSIDE                          /00571901/ [Concomitant]
     Active Substance: SENNOSIDES A AND B
  15. XTANDI [Suspect]
     Active Substance: ENZALUTAMIDE
     Dosage: 160 MG, 1 TIME DAILY
     Route: 048
     Dates: start: 20181221, end: 20190424
  16. OMNIPAQUE [Concomitant]
     Active Substance: IOHEXOL
     Indication: COMPUTERISED TOMOGRAM
     Dosage: UNK
     Dates: start: 20171031, end: 20190326
  17. NORSPAN [Concomitant]
     Active Substance: BUPRENORPHINE
  18. URIEF [Concomitant]
     Active Substance: SILODOSIN
     Indication: BENIGN PROSTATIC HYPERPLASIA
     Dosage: UNK
  19. BETANIS [Concomitant]
     Active Substance: MIRABEGRON
     Indication: BENIGN PROSTATIC HYPERPLASIA
     Dosage: UNK
     Dates: end: 20171127
  20. GLYCERIN                           /00200601/ [Concomitant]
     Active Substance: GLYCERIN
     Dosage: UNK
     Dates: start: 20181219, end: 20181219
  21. NOVAMIN                            /00013301/ [Concomitant]
     Active Substance: PROCHLORPERAZINE
  22. MAGNESIUM OXIDE. [Concomitant]
     Active Substance: MAGNESIUM OXIDE
  23. ZOLADEX LA [Suspect]
     Active Substance: GOSERELIN ACETATE
     Indication: HORMONE-REFRACTORY PROSTATE CANCER
     Dosage: 10.8 MG, 1 TIME DAILY
     Route: 058
     Dates: start: 20170829
  24. INFLUENZA HA VACCINE [Concomitant]
     Active Substance: INFLUENZA VIRUS VACCINE
     Indication: ANTIVIRAL PROPHYLAXIS
  25. NEXIUM [Concomitant]
     Active Substance: ESOMEPRAZOLE MAGNESIUM
  26. EURAX [Concomitant]
     Active Substance: CROTAMITON
  27. TECHNE MDP [Concomitant]
     Dosage: UNK
     Dates: start: 20181226, end: 20181226

REACTIONS (8)
  - Diarrhoea [Recovered/Resolved]
  - Off label use [Recovered/Resolved]
  - Haematuria [Not Recovered/Not Resolved]
  - Product use in unapproved indication [Recovered/Resolved]
  - Osteoarthritis [Recovered/Resolved]
  - Anaemia [Recovered/Resolved]
  - Urinary retention [Not Recovered/Not Resolved]
  - Periodontitis [Recovered/Resolved]

NARRATIVE: CASE EVENT DATE: 20170919
